FAERS Safety Report 23292964 (Version 1)
Quarter: 2023Q4

REPORT INFORMATION
  Report Type: Spontaneous
  Country: CN (occurrence: CN)
  Receive Date: 20231213
  Receipt Date: 20231213
  Transmission Date: 20240110
  Serious: Yes (Other)
  Sender: FDA-Public Use
  Company Number: CN-PFIZER INC-202300433920

PATIENT
  Age: 3 Week
  Sex: Male
  Weight: 0.76 kg

DRUGS (4)
  1. CEFOPERAZONE SODIUM\SULBACTAM SODIUM [Suspect]
     Active Substance: CEFOPERAZONE SODIUM\SULBACTAM SODIUM
     Indication: Anti-infective therapy
     Dosage: 0.02 G, 3X/DAY
     Route: 041
     Dates: start: 20231028, end: 20231103
  2. CEFOPERAZONE SODIUM\SULBACTAM SODIUM [Suspect]
     Active Substance: CEFOPERAZONE SODIUM\SULBACTAM SODIUM
     Dosage: 0.02 G, 3X/DAY
     Route: 041
     Dates: start: 20231106, end: 20231106
  3. LINEZOLID [Suspect]
     Active Substance: LINEZOLID
     Indication: Anti-infective therapy
     Dosage: UNK
     Dates: start: 20231110
  4. CEFTAZIDIME [Suspect]
     Active Substance: CEFTAZIDIME
     Indication: Anti-infective therapy
     Dosage: 0.038 G, 2X/DAY
     Route: 041
     Dates: start: 20231104, end: 20231106

REACTIONS (1)
  - Haematochezia [Unknown]

NARRATIVE: CASE EVENT DATE: 20231110
